FAERS Safety Report 21126030 (Version 1)
Quarter: 2022Q3

REPORT INFORMATION
  Report Type: Spontaneous
  Country: US (occurrence: None)
  Receive Date: 20220723
  Receipt Date: 20220723
  Transmission Date: 20221026
  Serious: Yes (Other)
  Sender: FDA-Public Use
  Company Number: None

PATIENT
  Age: 57 Year
  Sex: Female
  Weight: 75.6 kg

DRUGS (3)
  1. ACETAMINOPHEN\HYDROCODONE [Suspect]
     Active Substance: ACETAMINOPHEN\HYDROCODONE
     Indication: Back pain
     Dosage: OTHER FREQUENCY : 1 EVERY 5 HOURS;?
     Route: 048
     Dates: start: 20220718, end: 20220719
  2. LORAZEPAM [Suspect]
     Active Substance: LORAZEPAM
  3. Kirkland super B-complex [Concomitant]

REACTIONS (10)
  - Ephelides [None]
  - Skin discolouration [None]
  - Product quality issue [None]
  - Product dispensing error [None]
  - Product dispensing error [None]
  - Product contamination physical [None]
  - Fall [None]
  - Nonspecific reaction [None]
  - Quality of life decreased [None]
  - Overdose [None]

NARRATIVE: CASE EVENT DATE: 20220718
